FAERS Safety Report 17661597 (Version 1)
Quarter: 2020Q2

REPORT INFORMATION
  Report Type: Spontaneous
  Country: CA (occurrence: CA)
  Receive Date: 20200413
  Receipt Date: 20200413
  Transmission Date: 20200713
  Serious: Yes (Life-Threatening, Hospitalization)
  Sender: FDA-Public Use
  Company Number: CA-OXFORD PHARMACEUTICALS, LLC-2020OXF00055

PATIENT
  Age: 50 Year
  Sex: Male

DRUGS (7)
  1. AMLODIPINE [Concomitant]
     Active Substance: AMLODIPINE BESYLATE
     Route: 065
  2. TERAZOSIN [Concomitant]
     Active Substance: TERAZOSIN HYDROCHLORIDE
     Route: 065
  3. LEVOTHYROXINE. [Concomitant]
     Active Substance: LEVOTHYROXINE
     Route: 065
  4. SENOKOT [Concomitant]
     Active Substance: SENNOSIDES
     Route: 065
  5. AMOXICILLIN. [Concomitant]
     Active Substance: AMOXICILLIN
     Indication: TOOTH ABSCESS
  6. OLMESARTAN [Concomitant]
     Active Substance: OLMESARTAN
     Route: 065
  7. HYDROCHLOROTHIAZIDE. [Suspect]
     Active Substance: HYDROCHLOROTHIAZIDE
     Indication: HYPERTENSION
     Route: 048

REACTIONS (6)
  - Non-cardiogenic pulmonary oedema [Recovered/Resolved]
  - Acute respiratory distress syndrome [Recovered/Resolved]
  - Hypotension [Recovered/Resolved]
  - Pulseless electrical activity [Recovered/Resolved]
  - Respiratory failure [Recovered/Resolved]
  - Loss of consciousness [Recovered/Resolved]
